FAERS Safety Report 20329288 (Version 1)
Quarter: 2022Q1

REPORT INFORMATION
  Report Type: Report from Study
  Country: GB (occurrence: GB)
  Receive Date: 20220112
  Receipt Date: 20220112
  Transmission Date: 20220423
  Serious: Yes (Other)
  Sender: FDA-Public Use
  Company Number: GB-UCBSA-2022000456

PATIENT
  Sex: Female

DRUGS (2)
  1. CERTOLIZUMAB PEGOL [Suspect]
     Active Substance: CERTOLIZUMAB PEGOL
     Indication: Product used for unknown indication
     Dosage: 200 MILLIGRAM, EV 2 WEEKS(QOW)
  2. APROXEN [Concomitant]
     Indication: Pain

REACTIONS (5)
  - Lower respiratory tract infection [Unknown]
  - Condition aggravated [Unknown]
  - Feeling abnormal [Unknown]
  - Panic attack [Unknown]
  - Skin mass [Unknown]
